FAERS Safety Report 12609487 (Version 1)
Quarter: 2016Q3

REPORT INFORMATION
  Report Type: Report from Study
  Country: US (occurrence: US)
  Receive Date: 20160801
  Receipt Date: 20160801
  Transmission Date: 20161109
  Serious: Yes (Other)
  Sender: FDA-Public Use
  Company Number: US-ROCHE-772128

PATIENT
  Age: 53 Year
  Sex: Male
  Weight: 62.1 kg

DRUGS (5)
  1. VISMODEGIB [Suspect]
     Active Substance: VISMODEGIB
     Route: 048
  2. CISPLATIN. [Suspect]
     Active Substance: CISPLATIN
     Indication: SMALL CELL LUNG CANCER EXTENSIVE STAGE
     Dosage: 75 MG/M2  Q21D OVER 2 HRS ON DAY 1
     Route: 042
     Dates: start: 20100224
  3. ETOPOSIDE. [Suspect]
     Active Substance: ETOPOSIDE
     Indication: SMALL CELL LUNG CANCER EXTENSIVE STAGE
     Dosage: 100 MG/M2 QD*3D/21DC, OVER 2 HOURS ON DAY 1-3
     Route: 042
     Dates: start: 20100224
  4. VISMODEGIB [Suspect]
     Active Substance: VISMODEGIB
     Route: 048
  5. VISMODEGIB [Suspect]
     Active Substance: VISMODEGIB
     Indication: SMALL CELL LUNG CANCER EXTENSIVE STAGE
     Route: 048

REACTIONS (4)
  - Headache [Unknown]
  - Neutrophil count decreased [Unknown]
  - Hyponatraemia [Unknown]
  - Neutrophil count decreased [Recovered/Resolved]

NARRATIVE: CASE EVENT DATE: 20100426
